FAERS Safety Report 10147494 (Version 1)
Quarter: 2014Q2

REPORT INFORMATION
  Report Type: Spontaneous
  Country: US (occurrence: US)
  Receive Date: 20140501
  Receipt Date: 20140501
  Transmission Date: 20141212
  Serious: No
  Sender: FDA-Public Use
  Company Number: US-009507513-1404USA012841

PATIENT
  Age: 58 Year
  Sex: Female

DRUGS (2)
  1. DULERA [Suspect]
     Indication: ASTHMA
     Dosage: 2 DF,200/ 5MCG/ TWO PUFF, BID
     Route: 055
     Dates: start: 201312
  2. ALBUTEROL SULFATE [Concomitant]

REACTIONS (3)
  - Dyspnoea [Not Recovered/Not Resolved]
  - Drug dose omission [Unknown]
  - Product container issue [Unknown]
